FAERS Safety Report 5844733-9 (Version None)
Quarter: 2008Q3

REPORT INFORMATION
  Report Type: 
  Country: None (occurrence: None)
  Receive Date: 20080812
  Receipt Date: 20080804
  Transmission Date: 20090109
  Serious: Yes (Other)
  Sender: FDA-Public Use
  Company Number: 2008-GWUS-0557

PATIENT
  Age: 87 Year
  Sex: Female
  Weight: 75.7507 kg

DRUGS (2)
  1. FLECAINIDE ACETATE [Suspect]
     Indication: VENTRICULAR ARRHYTHMIA
     Dosage: 150MG - QD - PO 100MG - QPM - PO
     Route: 048
     Dates: start: 19860101
  2. TRAMADOL HCL [Concomitant]

REACTIONS (3)
  - B-CELL LYMPHOMA [None]
  - LYMPHADENOPATHY [None]
  - NON-HODGKIN'S LYMPHOMA [None]
